FAERS Safety Report 16444350 (Version 5)
Quarter: 2019Q4

REPORT INFORMATION
  Report Type: Spontaneous
  Country: JP (occurrence: JP)
  Receive Date: 20190618
  Receipt Date: 20191112
  Transmission Date: 20200122
  Serious: Yes (Other)
  Sender: FDA-Public Use
  Company Number: JP-AMGEN-JPNSP2019096301

PATIENT
  Age: 90 Year
  Sex: Female

DRUGS (5)
  1. METHYCOBAL [Concomitant]
     Active Substance: METHYLCOBALAMIN
     Dosage: 1 DOSAGE FORM, TID
  2. EDIROL [Concomitant]
     Active Substance: ELDECALCITOL
     Dosage: 1 DOSAGE FORM, QD
     Route: 065
     Dates: start: 20190510
  3. EVENITY [Suspect]
     Active Substance: ROMOSOZUMAB-AQQG
     Indication: OSTEOPOROSIS
     Dosage: 210 MILLIGRAM, QMO
     Route: 058
     Dates: start: 20190510
  4. LYRICA [Concomitant]
     Active Substance: PREGABALIN
     Dosage: 1 DOSAGE FORM, BID
  5. CELECOX [Concomitant]
     Active Substance: CELECOXIB
     Dosage: 1 DOSAGE FORM, BID

REACTIONS (1)
  - Renal impairment [Not Recovered/Not Resolved]

NARRATIVE: CASE EVENT DATE: 20190607
